FAERS Safety Report 8223158-5 (Version None)
Quarter: 2012Q1

REPORT INFORMATION
  Report Type: 
  Country: None (occurrence: None)
  Receive Date: 20120321
  Receipt Date: 20120319
  Transmission Date: 20120608
  Serious: No
  Sender: FDA-Public Use
  Company Number: US-BIOGENIDEC-2012BI009634

PATIENT
  Age: 48 Year
  Sex: Female

DRUGS (1)
  1. TYSABRI [Suspect]
     Indication: MULTIPLE SCLEROSIS
     Route: 042
     Dates: start: 20110810, end: 20120125

REACTIONS (6)
  - GAIT DISTURBANCE [None]
  - DRUG INEFFECTIVE [None]
  - MALAISE [None]
  - DYSARTHRIA [None]
  - VISUAL ACUITY REDUCED [None]
  - DRUG SPECIFIC ANTIBODY PRESENT [None]
